FAERS Safety Report 25432801 (Version 1)
Quarter: 2025Q2

REPORT INFORMATION
  Report Type: Spontaneous
  Country: CN (occurrence: CN)
  Receive Date: 20250613
  Receipt Date: 20250613
  Transmission Date: 20250717
  Serious: Yes (Hospitalization, Disabling, Other)
  Sender: HISUN PHARMACEUTICALS USA INC
  Company Number: CN-Hisun Pharmaceuticals USA Inc.-000409

PATIENT
  Age: 39 Year
  Sex: Female
  Weight: 45.05 kg

DRUGS (3)
  1. CLADRIBINE [Suspect]
     Active Substance: CLADRIBINE
     Indication: Acute myeloid leukaemia
     Route: 042
     Dates: start: 20250501, end: 20250505
  2. CYTARABINE [Suspect]
     Active Substance: CYTARABINE
     Indication: Acute myeloid leukaemia
     Route: 042
     Dates: start: 20250501, end: 20250505
  3. Gisaixin [Concomitant]
     Indication: Acute myeloid leukaemia
     Route: 058
     Dates: start: 20250430, end: 20250505

REACTIONS (6)
  - Abnormal uterine bleeding [Unknown]
  - Myelosuppression [Unknown]
  - Pyrexia [Unknown]
  - Dizziness [Unknown]
  - Asthenia [Unknown]
  - Product use in unapproved indication [Unknown]

NARRATIVE: CASE EVENT DATE: 20250501
